FAERS Safety Report 25429100 (Version 2)
Quarter: 2025Q3

REPORT INFORMATION
  Report Type: Spontaneous
  Country: US (occurrence: US)
  Receive Date: 20250612
  Receipt Date: 20250708
  Transmission Date: 20251021
  Serious: No
  Sender: DIFGEN PHARMACEUTICALS LLC
  Company Number: US-Difgen-012012

PATIENT
  Sex: Male

DRUGS (2)
  1. BUPRENORPHINE [Suspect]
     Active Substance: BUPRENORPHINE
     Indication: Product used for unknown indication
     Route: 062
  2. BUPRENORPHINE [Suspect]
     Active Substance: BUPRENORPHINE
     Indication: Product used for unknown indication
     Route: 062

REACTIONS (4)
  - Product quality issue [Not Recovered/Not Resolved]
  - Application site pruritus [Not Recovered/Not Resolved]
  - Application site rash [Unknown]
  - Application site erythema [Unknown]
